FAERS Safety Report 6430701-5 (Version None)
Quarter: 2009Q4

REPORT INFORMATION
  Report Type: 
  Country: None (occurrence: None)
  Receive Date: 20091105
  Receipt Date: 20091105
  Transmission Date: 20100525
  Serious: Yes (Hospitalization)
  Sender: FDA-Public Use
  Company Number: None

PATIENT
  Age: 23 Year
  Sex: Female
  Weight: 70.3 kg

DRUGS (2)
  1. ACETAMINOPHEN [Suspect]
     Indication: PAIN
     Dosage: 1000 MG QID PO
     Route: 048
     Dates: start: 20090521, end: 20090522
  2. PROMETHAZINE [Suspect]
     Dosage: 25 MG QID PO
     Route: 048
     Dates: start: 20090521, end: 20090522

REACTIONS (2)
  - CONFUSIONAL STATE [None]
  - SUICIDE ATTEMPT [None]
